FAERS Safety Report 7147885-6 (Version None)
Quarter: 2010Q4

REPORT INFORMATION
  Report Type: 
  Country: None (occurrence: None)
  Receive Date: 20101206
  Receipt Date: 20101206
  Transmission Date: 20110411
  Serious: Yes (Hospitalization)
  Sender: FDA-Public Use
  Company Number: None

PATIENT
  Sex: Female
  Weight: 155.3 kg

DRUGS (4)
  1. PREDNISONE [Suspect]
     Dosage: 1800 MG
     Dates: end: 20101114
  2. VINCRISTINE SULFATE [Suspect]
     Dosage: 6 MG
     Dates: end: 20101111
  3. MERCAPTOPURINE [Suspect]
     Dosage: 2025 MG
     Dates: end: 20101111
  4. METHOTREXATE [Suspect]
     Dosage: 30 MG
     Dates: end: 20101014

REACTIONS (2)
  - BACK PAIN [None]
  - MUSCULOSKELETAL PAIN [None]
